FAERS Safety Report 7932924-2 (Version None)
Quarter: 2011Q4

REPORT INFORMATION
  Report Type: 
  Country: None (occurrence: None)
  Receive Date: 20111122
  Receipt Date: 20111118
  Transmission Date: 20120403
  Serious: No
  Sender: FDA-Public Use
  Company Number: US-PFIZER INC-2011283198

PATIENT

DRUGS (1)
  1. VIAGRA [Suspect]
     Dosage: 50 MG, UNK (TRIED 3 TIMES IN 2 WEEKS)

REACTIONS (1)
  - DRUG INEFFECTIVE [None]
